FAERS Safety Report 9418196 (Version 1)
Quarter: 2013Q3

REPORT INFORMATION
  Report Type: Spontaneous
  Country: US (occurrence: US)
  Receive Date: 20130724
  Receipt Date: 20130724
  Transmission Date: 20140515
  Serious: Yes (Hospitalization, Other)
  Sender: FDA-Public Use
  Company Number: US-B.I. PHARMACEUTICALS,INC./RIDGEFIELD-2013-BI-21298BP

PATIENT
  Sex: Male

DRUGS (2)
  1. SPIRIVA [Suspect]
     Indication: EMPHYSEMA
     Route: 055
  2. ADVAIR [Concomitant]

REACTIONS (4)
  - Lung neoplasm malignant [Unknown]
  - Respiratory disorder [Unknown]
  - Mood altered [Unknown]
  - Product quality issue [Unknown]
